FAERS Safety Report 14923598 (Version 1)
Quarter: 2018Q2

REPORT INFORMATION
  Report Type: Spontaneous
  Country: FR (occurrence: FR)
  Receive Date: 20180522
  Receipt Date: 20180522
  Transmission Date: 20180711
  Serious: Yes (Hospitalization)
  Sender: FDA-Public Use
  Company Number: FR-TEVA-2018-FR-894422

PATIENT
  Age: 17 Year
  Sex: Female

DRUGS (5)
  1. LAMOTRIGINE. [Suspect]
     Active Substance: LAMOTRIGINE
     Route: 048
     Dates: start: 20180123, end: 20180206
  2. LOXAPINE (SUCCINATE DE) [Suspect]
     Active Substance: LOXAPINE SUCCINATE
     Route: 048
     Dates: start: 201801
  3. CYAMEMAZINE [Suspect]
     Active Substance: CYAMEMAZINE
     Route: 048
     Dates: start: 20180123, end: 20180208
  4. LEVETIRACETAM. [Suspect]
     Active Substance: LEVETIRACETAM
     Route: 048
     Dates: start: 20180123, end: 20180207
  5. RISPERIDONE. [Suspect]
     Active Substance: RISPERIDONE
     Route: 048
     Dates: start: 201801

REACTIONS (2)
  - Hepatocellular injury [Recovering/Resolving]
  - Cholestasis [Recovering/Resolving]

NARRATIVE: CASE EVENT DATE: 201802
